FAERS Safety Report 6003094-5 (Version None)
Quarter: 2008Q4

REPORT INFORMATION
  Report Type: 
  Country: None (occurrence: None)
  Receive Date: 20081216
  Receipt Date: 20081209
  Transmission Date: 20090506
  Serious: Yes (Hospitalization)
  Sender: FDA-Public Use
  Company Number: FR-SP-2008-03778

PATIENT
  Age: 80 Year
  Sex: Male
  Weight: 93 kg

DRUGS (1)
  1. IMMUCYST [Suspect]
     Indication: BLADDER CANCER
     Dosage: 1/2 DOSE 81 MG / 2ND COURSE
     Route: 043
     Dates: start: 20081112

REACTIONS (5)
  - BOVINE TUBERCULOSIS [None]
  - CHILLS [None]
  - DYSPNOEA [None]
  - PYREXIA [None]
  - URINARY RETENTION [None]
